FAERS Safety Report 4682292-7 (Version None)
Quarter: 2005Q2

REPORT INFORMATION
  Report Type: 
  Country: None (occurrence: None)
  Receive Date: 20050606
  Receipt Date: 20050509
  Transmission Date: 20051028
  Serious: Yes (Hospitalization)
  Sender: FDA-Public Use
  Company Number: HQWYE642911MAY05

PATIENT
  Sex: Male

DRUGS (2)
  1. ENBREL [Suspect]
     Indication: POLYARTHRITIS
     Dosage: 25 MG, UNSPECIFIED FREQUENCY
     Route: 058
     Dates: start: 20041001, end: 20041201
  2. ENBREL [Suspect]
     Dosage: 25MG INTERMITTENTLY, FOR A TOTAL OF SIX DOSES
     Route: 058
     Dates: start: 20050101, end: 20050401

REACTIONS (4)
  - DISEASE RECURRENCE [None]
  - ENDOCARDITIS [None]
  - OSTEOARTHRITIS [None]
  - TOOTH INFECTION [None]
